FAERS Safety Report 11857856 (Version 2)
Quarter: 2016Q1

REPORT INFORMATION
  Report Type: Spontaneous
  Country: DE (occurrence: DE)
  Receive Date: 20151222
  Receipt Date: 20160229
  Transmission Date: 20160526
  Serious: Yes (Hospitalization, Other)
  Sender: FDA-Public Use
  Company Number: DE-JNJFOC-20151214352

PATIENT
  Age: 41 Year
  Sex: Female
  Weight: 57 kg

DRUGS (7)
  1. HALDOL [Suspect]
     Active Substance: HALOPERIDOL
     Indication: REACTIVE PSYCHOSIS
     Dosage: 8 OR 9 MG OVER A PERIOD OF 24 HOUR.
     Route: 048
     Dates: start: 20120712, end: 20120714
  2. HALDOL [Suspect]
     Active Substance: HALOPERIDOL
     Indication: PROCEDURAL VOMITING
     Dosage: 8 OR 9 MG OVER A PERIOD OF 24 HOUR.
     Route: 048
     Dates: start: 20120712, end: 20120714
  3. DIPIDOLOR [Concomitant]
     Active Substance: PIRITRAMIDE
     Indication: ANALGESIC THERAPY
     Route: 042
     Dates: start: 20120712
  4. HALDOL [Suspect]
     Active Substance: HALOPERIDOL
     Indication: REACTIVE PSYCHOSIS
     Dosage: 8 OR 9 MG OVER A PERIOD OF 24 HOUR.
     Route: 042
     Dates: start: 20120712, end: 20120714
  5. HALDOL [Suspect]
     Active Substance: HALOPERIDOL
     Indication: PROCEDURAL NAUSEA
     Dosage: 8 OR 9 MG OVER A PERIOD OF 24 HOUR.
     Route: 048
     Dates: start: 20120712, end: 20120714
  6. HALDOL [Suspect]
     Active Substance: HALOPERIDOL
     Indication: PROCEDURAL VOMITING
     Dosage: 8 OR 9 MG OVER A PERIOD OF 24 HOUR.
     Route: 042
     Dates: start: 20120712, end: 20120714
  7. HALDOL [Suspect]
     Active Substance: HALOPERIDOL
     Indication: PROCEDURAL NAUSEA
     Dosage: 8 OR 9 MG OVER A PERIOD OF 24 HOUR.
     Route: 042
     Dates: start: 20120712, end: 20120714

REACTIONS (3)
  - Arrhythmia [Recovered/Resolved]
  - Mental disorder [Recovered/Resolved]
  - Dyskinesia [Recovered/Resolved]

NARRATIVE: CASE EVENT DATE: 20120712
